FAERS Safety Report 10091714 (Version 2)
Quarter: 2014Q2

REPORT INFORMATION
  Report Type: Spontaneous
  Country: US (occurrence: US)
  Receive Date: 20140421
  Receipt Date: 20140421
  Transmission Date: 20141212
  Serious: No
  Sender: FDA-Public Use
  Company Number: US-GILEAD-2013-0067378

PATIENT
  Sex: Female

DRUGS (1)
  1. LETAIRIS [Suspect]
     Indication: PULMONARY ARTERIAL HYPERTENSION
     Dosage: 5 MG, QOD
     Route: 048
     Dates: start: 20130102

REACTIONS (1)
  - Urticaria [Recovered/Resolved]
